FAERS Safety Report 22615092 (Version 1)
Quarter: 2023Q2

REPORT INFORMATION
  Report Type: Spontaneous
  Country: CA (occurrence: CA)
  Receive Date: 20230619
  Receipt Date: 20230619
  Transmission Date: 20230721
  Serious: Yes (Hospitalization, Other)
  Sender: FDA-Public Use
  Company Number: CA-BECTON DICKINSON-CA-BD-23-000202

PATIENT
  Age: 3 Month
  Sex: Female
  Weight: 3 kg

DRUGS (2)
  1. CHLORHEXIDINE GLUCONATE\ISOPROPYL ALCOHOL [Suspect]
     Active Substance: CHLORHEXIDINE GLUCONATE\ISOPROPYL ALCOHOL
     Indication: Infection prophylaxis
     Dosage: UNK UNK, SINGLE
     Route: 061
  2. ISOPROPYL ALCOHOL [Suspect]
     Active Substance: ISOPROPYL ALCOHOL
     Indication: Infection prophylaxis
     Dosage: UNK, SINGLE
     Route: 061

REACTIONS (2)
  - Skin exfoliation [Recovered/Resolved]
  - Chemical burn [Recovered/Resolved]
